FAERS Safety Report 11142976 (Version 2)
Quarter: 2015Q3

REPORT INFORMATION
  Report Type: Spontaneous
  Country: US (occurrence: US)
  Receive Date: 20150528
  Receipt Date: 20150702
  Transmission Date: 20151125
  Serious: Yes (Other)
  Sender: FDA-Public Use
  Company Number: US-AUROBINDO-AUR-APU-2015-04554

PATIENT
  Sex: Male
  Weight: 136 kg

DRUGS (5)
  1. GABAPENTIN CAPSULES 300 MG [Suspect]
     Active Substance: GABAPENTIN
     Indication: PAIN IN EXTREMITY
     Dosage: 300 MG, 3 TIMES A DAY (ONE DURING THE DAY (MORNING) AND TWO AT NIGHT)
     Route: 048
  2. FUROSEMIDE. [Concomitant]
     Active Substance: FUROSEMIDE
     Indication: SWELLING
  3. LISINOPRIL. [Concomitant]
     Active Substance: LISINOPRIL
     Indication: HYPERTENSION
     Dosage: UNK
     Route: 065
  4. GABAPENTIN CAPSULES 300 MG [Suspect]
     Active Substance: GABAPENTIN
     Indication: NEUROPATHY PERIPHERAL
  5. FUROSEMIDE. [Concomitant]
     Active Substance: FUROSEMIDE
     Indication: FLUID RETENTION
     Dosage: UNK
     Route: 065

REACTIONS (6)
  - Somnolence [Unknown]
  - Fatigue [Unknown]
  - Therapeutic response decreased [Unknown]
  - Drug administration error [Unknown]
  - Insomnia [Unknown]
  - Hypersomnia [Unknown]
